FAERS Safety Report 17572337 (Version 1)
Quarter: 2020Q1

REPORT INFORMATION
  Report Type: Spontaneous
  Country: US (occurrence: US)
  Receive Date: 20200317
  Receipt Date: 20200317
  Transmission Date: 20200409
  Serious: No
  Sender: FDA-Public Use
  Company Number: None

PATIENT
  Age: 39 Year
  Sex: Female

DRUGS (1)
  1. DEFERASIROX 500MG TAB (X30) [Suspect]
     Active Substance: DEFERASIROX
     Route: 048
     Dates: start: 201910

REACTIONS (2)
  - Therapy cessation [None]
  - Sickle cell anaemia with crisis [None]

NARRATIVE: CASE EVENT DATE: 20200317
